FAERS Safety Report 18397727 (Version 1)
Quarter: 2020Q4

REPORT INFORMATION
  Report Type: Spontaneous
  Country: US (occurrence: US)
  Receive Date: 20201016
  Receipt Date: 20201016
  Transmission Date: 20210114
  Serious: Yes (Hospitalization)
  Sender: FDA-Public Use
  Company Number: None

PATIENT
  Sex: Male

DRUGS (7)
  1. ESBRIET [Suspect]
     Active Substance: PIRFENIDONE
     Indication: IDIOPATHIC PULMONARY FIBROSIS
     Route: 048
     Dates: start: 20180710
  2. METOPROL SUC [Concomitant]
  3. SFIRIVIA [Concomitant]
     Indication: IDIOPATHIC PULMONARY FIBROSIS
     Route: 048
     Dates: start: 20180710
  4. LOSARTAN POT [Concomitant]
     Active Substance: LOSARTAN POTASSIUM
  5. ROSUVASTATIN. [Concomitant]
     Active Substance: ROSUVASTATIN
  6. ALBUTEROL AER [Concomitant]
     Active Substance: ALBUTEROL
  7. ER OMEPRAZOLE [Concomitant]

REACTIONS (2)
  - Heart rate increased [None]
  - Blood pressure decreased [None]
